FAERS Safety Report 12830755 (Version 3)
Quarter: 2018Q2

REPORT INFORMATION
  Report Type: Report from Study
  Country: US (occurrence: US)
  Receive Date: 20161007
  Receipt Date: 20180404
  Transmission Date: 20180711
  Serious: No
  Sender: FDA-Public Use
  Company Number: US-AMGEN-USASL2016112021

PATIENT
  Age: 55 Year
  Sex: Female

DRUGS (5)
  1. VITAMIN D [Concomitant]
     Active Substance: CHOLECALCIFEROL
  2. INSULIN [Concomitant]
     Active Substance: INSULIN NOS
  3. PROLIA [Suspect]
     Active Substance: DENOSUMAB
     Indication: STRESS FRACTURE
     Dosage: 60 MG, Q6MO
     Route: 065
  4. PROLIA [Suspect]
     Active Substance: DENOSUMAB
     Indication: OSTEOPOROSIS
  5. CALCIUM [Concomitant]
     Active Substance: CALCIUM

REACTIONS (1)
  - Off label use [Unknown]
